FAERS Safety Report 8717360 (Version 2)
Quarter: 2013Q2

REPORT INFORMATION
  Report Type: Report from Study
  Country: JP (occurrence: JP)
  Receive Date: 20120810
  Receipt Date: 20130412
  Transmission Date: 20140414
  Serious: Yes (Hospitalization, Other)
  Sender: FDA-Public Use
  Company Number: JP-VERTEX PHARMACEUTICALS INC.-AE-2012-011710

PATIENT
  Age: 47 Year
  Sex: Male

DRUGS (14)
  1. VX-950 (TELAPREVIR) [Suspect]
     Indication: CHRONIC HEPATITIS C
     Dosage: 2250 MG, QD
     Route: 048
     Dates: start: 20120509, end: 20120711
  2. RIBAVIRIN [Suspect]
     Indication: CHRONIC HEPATITIS C
     Dosage: 800 MG, QD
     Route: 048
     Dates: start: 20120509, end: 20120522
  3. RIBAVIRIN [Suspect]
     Dosage: 600 MG, QD
     Route: 048
     Dates: start: 20120523, end: 20120529
  4. RIBAVIRIN [Suspect]
     Dosage: 400 MG, QD
     Route: 048
     Dates: start: 20120530, end: 20120605
  5. RIBAVIRIN [Suspect]
     Dosage: 500 MG, QD
     Route: 048
     Dates: start: 20120606, end: 20120612
  6. RIBAVIRIN [Suspect]
     Dosage: 400 MG, QD
     Route: 048
     Dates: start: 20120613, end: 20120711
  7. PEGINTERFERON ALFA-2B [Suspect]
     Indication: CHRONIC HEPATITIS C
     Dosage: 1.5 ?G/KG, QW
     Route: 058
     Dates: start: 20120509, end: 20120529
  8. PEGINTERFERON ALFA-2B [Suspect]
     Dosage: 80 ?G, QW
     Route: 058
     Dates: start: 20120530, end: 20120605
  9. PEGINTERFERON ALFA-2B [Suspect]
     Dosage: 40 ?G, QW
     Route: 058
     Dates: start: 20120606, end: 20120612
  10. PEGINTERFERON ALFA-2B [Suspect]
     Dosage: 60 ?G,QW
     Route: 058
     Dates: start: 20120613, end: 20120620
  11. PEGINTERFERON ALFA-2B [Suspect]
     Dosage: 70 ?G, QW
     Route: 058
     Dates: start: 20120621, end: 20120711
  12. LOXONIN [Concomitant]
     Dosage: 3 DF, QD
     Route: 048
     Dates: start: 20120509, end: 20120511
  13. MUCOSTA [Concomitant]
     Dosage: 3 DF, QD
     Route: 048
     Dates: start: 20120509, end: 20120511
  14. NAUZELIN [Concomitant]
     Dosage: 3 DF, QD
     Route: 048
     Dates: start: 20120516, end: 20120711

REACTIONS (2)
  - Syncope [Recovered/Resolved]
  - Neutrophil count decreased [Recovered/Resolved]
